FAERS Safety Report 10232307 (Version 1)
Quarter: 2014Q2

REPORT INFORMATION
  Report Type: Spontaneous
  Country: FR (occurrence: FR)
  Receive Date: 20140612
  Receipt Date: 20140612
  Transmission Date: 20141212
  Serious: Yes (Hospitalization)
  Sender: FDA-Public Use
  Company Number: FR-ROCHE-1414281

PATIENT
  Age: 79 Year
  Sex: Female

DRUGS (8)
  1. APRANAX [Suspect]
     Indication: PRODUCT USED FOR UNKNOWN INDICATION
     Route: 048
     Dates: end: 20140413
  2. OLMETEC [Suspect]
     Indication: PRODUCT USED FOR UNKNOWN INDICATION
     Route: 048
     Dates: end: 20140413
  3. SOLIAN [Suspect]
     Indication: PRODUCT USED FOR UNKNOWN INDICATION
     Route: 048
     Dates: end: 20140413
  4. ANAFRANIL [Suspect]
     Indication: PRODUCT USED FOR UNKNOWN INDICATION
     Route: 048
     Dates: end: 20140413
  5. ACTONEL [Concomitant]
     Route: 048
     Dates: end: 20140413
  6. DAFALGAN [Concomitant]
     Route: 048
     Dates: end: 20140413
  7. SPASFON (FRANCE) [Concomitant]
     Route: 048
     Dates: end: 20140413
  8. INIPOMP [Concomitant]
     Route: 048
     Dates: end: 20140413

REACTIONS (6)
  - Diarrhoea [Recovered/Resolved]
  - Hypovolaemic shock [Recovered/Resolved]
  - Colitis ischaemic [Recovering/Resolving]
  - Renal failure acute [Unknown]
  - Duodenitis [Recovering/Resolving]
  - Enteritis [Recovering/Resolving]
